FAERS Safety Report 17370004 (Version 1)
Quarter: 2020Q1

REPORT INFORMATION
  Report Type: Spontaneous
  Country: TR (occurrence: TR)
  Receive Date: 20200205
  Receipt Date: 20200205
  Transmission Date: 20200409
  Serious: Yes (Death, Other)
  Sender: FDA-Public Use
  Company Number: TR-AMGEN-TURSP2020016403

PATIENT

DRUGS (8)
  1. INFLIXIMAB [Concomitant]
     Active Substance: INFLIXIMAB
     Dosage: 5 MILLIGRAM/KILOGRAM, (0, 2 AND 6 WEEKS FOLLOWED BY EVERY 8 WEEKS INTRAVENOUSLY)
     Route: 042
  2. METHYLPREDNISOLONE. [Concomitant]
     Active Substance: METHYLPREDNISOLONE
     Dosage: UNK MILLIGRAM (DECREASED DOSE)
  3. ISONIAZID. [Concomitant]
     Active Substance: ISONIAZID
     Indication: ANTIBIOTIC PROPHYLAXIS
  4. COLCHICUM [Concomitant]
     Active Substance: COLCHICINE
     Dosage: UNK
  5. AZATHIOPRINE. [Concomitant]
     Active Substance: AZATHIOPRINE
  6. ADALIMUMAB [Suspect]
     Active Substance: ADALIMUMAB
     Indication: BEHCET^S SYNDROME
     Dosage: 40 MILLIGRAM, Q2WK
     Route: 058
  7. METHYLPREDNISOLONE. [Concomitant]
     Active Substance: METHYLPREDNISOLONE
     Dosage: UNK MILLIGRAM
  8. VORICONAZOLE. [Concomitant]
     Active Substance: VORICONAZOLE

REACTIONS (5)
  - Off label use [Unknown]
  - Pneumonia [Fatal]
  - Pulmonary tuberculosis [Unknown]
  - Renal vein thrombosis [Unknown]
  - Therapeutic product effect incomplete [Unknown]
